FAERS Safety Report 15053065 (Version 1)
Quarter: 2018Q2

REPORT INFORMATION
  Report Type: Spontaneous
  Country: NL (occurrence: NL)
  Receive Date: 20180622
  Receipt Date: 20180622
  Transmission Date: 20180711
  Serious: Yes (Other)
  Sender: FDA-Public Use
  Company Number: NL-MYLANLABS-2018M1042667

PATIENT
  Age: 13 Month
  Sex: Male

DRUGS (3)
  1. VORICONAZOLE. [Suspect]
     Active Substance: VORICONAZOLE
     Indication: ASPERGILLUS INFECTION
     Dosage: 27 MG/KG, QD
     Route: 042
  2. ITRACONAZOLE. [Interacting]
     Active Substance: ITRACONAZOLE
     Indication: PROPHYLAXIS
  3. VORICONAZOLE. [Suspect]
     Active Substance: VORICONAZOLE
     Dosage: 24 MG/KG, QD
     Route: 042

REACTIONS (3)
  - Cardiovascular insufficiency [Unknown]
  - Drug-induced liver injury [Unknown]
  - Drug interaction [Unknown]
